FAERS Safety Report 12335453 (Version 2)
Quarter: 2016Q2

REPORT INFORMATION
  Report Type: Spontaneous
  Country: US (occurrence: US)
  Receive Date: 20160504
  Receipt Date: 20160606
  Transmission Date: 20160815
  Serious: Yes (Other)
  Sender: FDA-Public Use
  Company Number: ADR-2015-01428

PATIENT
  Age: 40 Year
  Sex: Female

DRUGS (1)
  1. BACLOFEN. [Suspect]
     Active Substance: BACLOFEN

REACTIONS (1)
  - Pocket erosion [Unknown]

NARRATIVE: CASE EVENT DATE: 20141031
